FAERS Safety Report 7754489-0 (Version None)
Quarter: 2011Q3

REPORT INFORMATION
  Report Type: 
  Country: None (occurrence: None)
  Receive Date: 20110915
  Receipt Date: 20110905
  Transmission Date: 20111222
  Serious: Yes (Hospitalization)
  Sender: FDA-Public Use
  Company Number: BR-US-EMD SERONO, INC.-7081547

PATIENT
  Sex: Female

DRUGS (9)
  1. RANITIDINE [Concomitant]
  2. REBIF [Suspect]
     Indication: RELAPSING-REMITTING MULTIPLE SCLEROSIS
     Dates: start: 20110328
  3. IBUPROFEN [Concomitant]
  4. CLONAZEPAM [Concomitant]
  5. PROPRANOLOL [Concomitant]
  6. PREDNISONE [Concomitant]
  7. CITALOPRAM HYDROBROMIDE [Concomitant]
  8. REFORGAN [Concomitant]
  9. CARBAMAZEPINE [Concomitant]

REACTIONS (3)
  - DIPLOPIA [None]
  - MUSCULAR WEAKNESS [None]
  - HYPOAESTHESIA ORAL [None]
